FAERS Safety Report 4528211-5 (Version None)
Quarter: 2004Q4

REPORT INFORMATION
  Report Type: 
  Country: None (occurrence: None)
  Receive Date: 20041130
  Receipt Date: 20041018
  Transmission Date: 20050328
  Serious: No
  Sender: FDA-Public Use
  Company Number: 702335

PATIENT
  Age: 42 Year
  Sex: Female
  Weight: 86.1834 kg

DRUGS (1)
  1. AMEVIVE [Suspect]
     Indication: PSORIASIS
     Dosage: 15 MG QW IM
     Route: 030
     Dates: start: 20040820

REACTIONS (5)
  - FATIGUE [None]
  - PAIN OF SKIN [None]
  - PRURITUS [None]
  - PSORIASIS [None]
  - SKIN INFECTION [None]
